FAERS Safety Report 5624961-8 (Version None)
Quarter: 2008Q1

REPORT INFORMATION
  Report Type: 
  Country: None (occurrence: None)
  Receive Date: 20080213
  Receipt Date: 20080130
  Transmission Date: 20080703
  Serious: Yes (Other)
  Sender: FDA-Public Use
  Company Number: BR-GENENTECH-255546

PATIENT
  Sex: Female

DRUGS (1)
  1. HERCEPTIN [Suspect]
     Indication: BREAST CANCER
     Dosage: 680 MG, UNK
     Dates: start: 20080116, end: 20080116

REACTIONS (2)
  - CYANOSIS [None]
  - TREMOR [None]
